FAERS Safety Report 22319260 (Version 1)
Quarter: 2023Q2

REPORT INFORMATION
  Report Type: Report from Study
  Country: IT (occurrence: IT)
  Receive Date: 20230515
  Receipt Date: 20230515
  Transmission Date: 20230722
  Serious: Yes (Hospitalization)
  Sender: FDA-Public Use
  Company Number: None

PATIENT
  Age: 82 Year
  Sex: Male

DRUGS (2)
  1. FENTANYL [Suspect]
     Active Substance: FENTANYL
     Indication: Anaesthesia procedure
     Dosage: DOSAGE: 80, UNIT OF MEASUREMENT: MICROGRAMS
     Route: 042
     Dates: start: 20230130, end: 20230130
  2. MIDAZOLAM [Suspect]
     Active Substance: MIDAZOLAM
     Indication: Anaesthesia procedure
     Dosage: DOSAGE: 3, UNIT OF MEASUREMENT: MILLIGRAMS
     Route: 042
     Dates: start: 20230130, end: 20230130

REACTIONS (1)
  - Sedation complication [Recovered/Resolved]

NARRATIVE: CASE EVENT DATE: 20230130
